FAERS Safety Report 20165024 (Version 2)
Quarter: 2022Q1

REPORT INFORMATION
  Report Type: Spontaneous
  Country: BR (occurrence: BR)
  Receive Date: 20211209
  Receipt Date: 20220106
  Transmission Date: 20220423
  Serious: Yes (Other)
  Sender: FDA-Public Use
  Company Number: BR-BAYER-2021A263655

PATIENT

DRUGS (1)
  1. EYLEA [Suspect]
     Active Substance: AFLIBERCEPT
     Indication: Age-related macular degeneration
     Dosage: UNK, LAST INJECTION RECEIVED
     Route: 031
     Dates: start: 2017, end: 2017

REACTIONS (3)
  - Blindness [Not Recovered/Not Resolved]
  - Corneal opacity [Unknown]
  - Eye inflammation [Unknown]

NARRATIVE: CASE EVENT DATE: 20170101
